FAERS Safety Report 8953027 (Version 1)
Quarter: 2012Q4

REPORT INFORMATION
  Report Type: 
  Country: FR (occurrence: FR)
  Receive Date: 20121205
  Receipt Date: 20121205
  Transmission Date: 20130627
  Serious: Yes (Other)
  Sender: FDA-Public Use
  Company Number: FR-TEVA-373224ISR

PATIENT
  Sex: Female

DRUGS (3)
  1. ALPRAZOLAM [Suspect]
     Dosage: 23 Tablet Daily;
     Route: 048
     Dates: start: 20121127
  2. ALPRAZOLAM [Suspect]
     Dosage: 20 Tablet Daily;
     Route: 048
     Dates: start: 20121127
  3. ALPRAZOLAM [Suspect]

REACTIONS (3)
  - Suicide attempt [Not Recovered/Not Resolved]
  - Intentional overdose [Not Recovered/Not Resolved]
  - Somnolence [Not Recovered/Not Resolved]
